FAERS Safety Report 23013805 (Version 1)
Quarter: 2023Q4

REPORT INFORMATION
  Report Type: Report from Study
  Country: US (occurrence: US)
  Receive Date: 20231001
  Receipt Date: 20231001
  Transmission Date: 20240110
  Serious: Yes (Death, Other)
  Sender: FDA-Public Use
  Company Number: US-JNJFOC-20230959968

PATIENT

DRUGS (1)
  1. ULTRAM [Suspect]
     Active Substance: TRAMADOL HYDROCHLORIDE
     Indication: Product used for unknown indication
     Route: 065

REACTIONS (14)
  - Completed suicide [Fatal]
  - Depressed level of consciousness [Unknown]
  - Seizure [Unknown]
  - Drug abuse [Unknown]
  - Overdose [Unknown]
  - Hypertension [Unknown]
  - Dizziness [Unknown]
  - Tachycardia [Unknown]
  - Agitation [Unknown]
  - Movement disorder [Unknown]
  - Intentional product misuse [Unknown]
  - Nausea [Unknown]
  - Vomiting [Unknown]
  - Medication error [Unknown]
